FAERS Safety Report 6922905-X (Version None)
Quarter: 2010Q3

REPORT INFORMATION
  Report Type: 
  Country: None (occurrence: None)
  Receive Date: 20100813
  Receipt Date: 20100712
  Transmission Date: 20110219
  Serious: Yes (Other)
  Sender: FDA-Public Use
  Company Number: PHEH2006US15219

PATIENT
  Sex: Female

DRUGS (5)
  1. ZOMETA [Suspect]
  2. AREDIA [Suspect]
  3. FEMARA [Suspect]
  4. CELEBREX [Concomitant]
  5. CELEXA [Concomitant]

REACTIONS (41)
  - ABDOMINAL DISTENSION [None]
  - ABSCESS JAW [None]
  - ANXIETY [None]
  - ARTHRALGIA [None]
  - ATELECTASIS [None]
  - BREAST CANCER RECURRENT [None]
  - BREAST CANCER STAGE IV [None]
  - BRONCHITIS [None]
  - CENTRAL NERVOUS SYSTEM LESION [None]
  - CENTRAL VENOUS CATHETERISATION [None]
  - CHEST PAIN [None]
  - COMPRESSION FRACTURE [None]
  - COUGH [None]
  - DECREASED INTEREST [None]
  - DEPRESSION [None]
  - DYSPNOEA [None]
  - DYSURIA [None]
  - FATIGUE [None]
  - GENERAL PHYSICAL HEALTH DETERIORATION [None]
  - HEADACHE [None]
  - INTERVERTEBRAL DISC DEGENERATION [None]
  - LYMPH NODE CALCIFICATION [None]
  - LYMPHADENOPATHY MEDIASTINAL [None]
  - MALIGNANT NEOPLASM PROGRESSION [None]
  - MASTOIDITIS [None]
  - METASTASES TO BONE [None]
  - METASTASES TO LIVER [None]
  - METASTASES TO SPINE [None]
  - NAUSEA [None]
  - OSTEONECROSIS OF JAW [None]
  - PAIN [None]
  - PLEURAL EFFUSION [None]
  - PNEUMOTHORAX [None]
  - POLLAKIURIA [None]
  - PYREXIA [None]
  - SINUSITIS [None]
  - TENDONITIS [None]
  - TOOTHACHE [None]
  - URINARY TRACT INFECTION [None]
  - VOMITING [None]
  - WHEEZING [None]
